FAERS Safety Report 6406795-X (Version None)
Quarter: 2009Q4

REPORT INFORMATION
  Report Type: 
  Country: None (occurrence: None)
  Receive Date: 20091020
  Receipt Date: 20091009
  Transmission Date: 20100525
  Serious: Yes (Other)
  Sender: FDA-Public Use
  Company Number: US-PFIZER INC-2009281983

PATIENT
  Sex: Female
  Weight: 71.202 kg

DRUGS (2)
  1. CHANTIX [Suspect]
     Route: 048
     Dates: start: 20090914, end: 20091002
  2. PLAVIX [Concomitant]
     Indication: ANTICOAGULANT THERAPY
     Dates: start: 20090701

REACTIONS (4)
  - DYSPHAGIA [None]
  - PHARYNGEAL OEDEMA [None]
  - RASH PAPULAR [None]
  - TONGUE DISORDER [None]
